FAERS Safety Report 19412707 (Version 1)
Quarter: 2021Q2

REPORT INFORMATION
  Report Type: Spontaneous
  Country: NL (occurrence: NL)
  Receive Date: 20210614
  Receipt Date: 20210614
  Transmission Date: 20210717
  Serious: Yes (Other)
  Sender: FDA-Public Use
  Company Number: NL-AMNEAL PHARMACEUTICALS-2021-AMRX-02198

PATIENT
  Sex: Female

DRUGS (2)
  1. PREDNISOLONE. [Concomitant]
     Active Substance: PREDNISOLONE
     Indication: CHOROIDITIS
     Dosage: 10 MILLIGRAM, DAILY
     Route: 065
  2. AZATHIOPRINE. [Suspect]
     Active Substance: AZATHIOPRINE
     Indication: CHOROIDITIS
     Dosage: 125 MILLIGRAM, DAILY
     Route: 065

REACTIONS (2)
  - Cholestasis of pregnancy [Unknown]
  - Exposure during pregnancy [Unknown]
